FAERS Safety Report 16112445 (Version 4)
Quarter: 2019Q2

REPORT INFORMATION
  Report Type: Report from Study
  Country: DE (occurrence: DE)
  Receive Date: 20190325
  Receipt Date: 20190405
  Transmission Date: 20190711
  Serious: Yes (Life-Threatening, Hospitalization, Other)
  Sender: FDA-Public Use
  Company Number: DE-PFIZER INC-2019125438

PATIENT
  Age: 32 Year
  Sex: Female
  Weight: 75 kg

DRUGS (11)
  1. FLUOROMETHOLONE. [Suspect]
     Active Substance: FLUOROMETHOLONE
     Indication: CONJUNCTIVITIS
     Dosage: UNK
     Route: 031
     Dates: start: 20010319
  2. FLOXAL [Suspect]
     Active Substance: OFLOXACIN
     Indication: CONJUNCTIVITIS
     Dosage: UNK
     Route: 065
     Dates: start: 20010303
  3. OPHTALMIN [Concomitant]
     Dosage: UNK
     Route: 031
  4. FLOXAL [Suspect]
     Active Substance: OFLOXACIN
     Dosage: UNK
     Route: 031
     Dates: end: 20010308
  5. CORSODYL [Concomitant]
     Active Substance: CHLORHEXIDINE GLUCONATE
     Indication: CANDIDA INFECTION
     Dosage: UNK
     Route: 048
     Dates: start: 20010324
  6. PANTOZOL [Suspect]
     Active Substance: PANTOPRAZOLE SODIUM
     Indication: PROPHYLAXIS AGAINST GASTROINTESTINAL ULCER
     Dosage: 1 DF, 1X/DAY
     Route: 048
     Dates: start: 20000207
  7. TRILEPTAL [Suspect]
     Active Substance: OXCARBAZEPINE
     Indication: SEIZURE
     Dosage: 1050 MILLIGRAM, QD
     Route: 048
     Dates: start: 20010215
  8. TETRYZOLINE [Suspect]
     Active Substance: TETRAHYDROZOLINE
     Indication: CONJUNCTIVITIS
     Dosage: UNK
     Route: 065
     Dates: start: 20010310, end: 20010317
  9. CANDIO-HERMAL [Concomitant]
     Active Substance: NYSTATIN
     Indication: CANDIDA INFECTION
     Dosage: UNK
     Route: 048
     Dates: start: 20010324
  10. TRILEPTAL [Suspect]
     Active Substance: OXCARBAZEPINE
     Dosage: 1200 MILLIGRAM, QD
     Route: 048
     Dates: start: 20010216
  11. FORTECORTIN [DEXAMETHASONE] [Suspect]
     Active Substance: DEXAMETHASONE
     Indication: BRAIN OEDEMA
     Dosage: 6 MILLIGRAM, QD
     Route: 048
     Dates: start: 20001228

REACTIONS (10)
  - Oral discomfort [Recovered/Resolved]
  - Dermatitis bullous [Recovered/Resolved]
  - Mucosal erosion [Recovered/Resolved]
  - Stevens-Johnson syndrome [Recovered/Resolved]
  - Toxic epidermal necrolysis [Recovered/Resolved]
  - Rash macular [Recovered/Resolved]
  - Leukocytosis [Unknown]
  - Pruritus [Recovered/Resolved]
  - Ocular hyperaemia [Recovered/Resolved]
  - Enanthema [Recovered/Resolved]

NARRATIVE: CASE EVENT DATE: 20010324
